FAERS Safety Report 8863254 (Version 1)
Quarter: 2012Q4

REPORT INFORMATION
  Report Type: 
  Country: GB (occurrence: GB)
  Receive Date: 20121025
  Receipt Date: 20121025
  Transmission Date: 20130627
  Serious: Yes (Other)
  Sender: FDA-Public Use
  Company Number: GB-ASTRAZENECA-2012SE71327

PATIENT
  Age: 47 Year
  Sex: Female

DRUGS (4)
  1. SEROQUEL XL [Suspect]
     Indication: PSYCHOTIC DISORDER
     Route: 048
     Dates: start: 20120227, end: 20120831
  2. VENLAFAXINE [Concomitant]
     Indication: DEPRESSION
     Route: 048
     Dates: start: 201204
  3. LOSARTAN [Concomitant]
     Indication: HYPERTENSION
     Route: 048
     Dates: start: 201202
  4. MIRTAZAPINE [Concomitant]
     Indication: DEPRESSION
     Dosage: 15 MG- 45 MG DAILY
     Route: 048
     Dates: start: 201201, end: 201204

REACTIONS (3)
  - Eye inflammation [Unknown]
  - Type 2 diabetes mellitus [Unknown]
  - Eye pain [Unknown]
